FAERS Safety Report 9026185 (Version 2)
Quarter: 2013Q2

REPORT INFORMATION
  Report Type: Spontaneous
  Country: US (occurrence: US)
  Receive Date: 20130123
  Receipt Date: 20130419
  Transmission Date: 20140414
  Serious: No
  Sender: FDA-Public Use
  Company Number: US-009507513-1301USA004461

PATIENT
  Age: 18 Year
  Sex: Female
  Weight: 78.95 kg

DRUGS (3)
  1. NEXPLANON [Suspect]
     Indication: CONTRACEPTION
     Dosage: UNK
     Route: 059
     Dates: start: 20121226
  2. ALBUTEROL [Concomitant]
  3. FLAGYL [Concomitant]

REACTIONS (2)
  - Scar [Not Recovered/Not Resolved]
  - Implant site vesicles [Recovered/Resolved]
